FAERS Safety Report 8263942-5 (Version None)
Quarter: 2012Q2

REPORT INFORMATION
  Report Type: 
  Country: None (occurrence: None)
  Receive Date: 20120406
  Receipt Date: 20120329
  Transmission Date: 20120825
  Serious: Yes (Life-Threatening, Hospitalization, Disabling)
  Sender: FDA-Public Use
  Company Number: IT-BIOGENIDEC-2012BI008811

PATIENT
  Age: 43 Year
  Sex: Male

DRUGS (1)
  1. TYSABRI [Suspect]
     Indication: MULTIPLE SCLEROSIS
     Route: 042
     Dates: start: 20101101, end: 20120307

REACTIONS (6)
  - PROGRESSIVE MULTIFOCAL LEUKOENCEPHALOPATHY [None]
  - CONDUCT DISORDER [None]
  - EPILEPSY [None]
  - PERSONALITY CHANGE [None]
  - AFFECTIVE DISORDER [None]
  - DISTURBANCE IN ATTENTION [None]
